FAERS Safety Report 15566891 (Version 4)
Quarter: 2020Q1

REPORT INFORMATION
  Report Type: Spontaneous
  Country: US (occurrence: US)
  Receive Date: 20181030
  Receipt Date: 20200124
  Transmission Date: 20200409
  Serious: Yes (Other)
  Sender: FDA-Public Use
  Company Number: US-PFIZER INC-2018433845

PATIENT
  Age: 50 Year
  Sex: Female

DRUGS (1)
  1. PREMPRO [Suspect]
     Active Substance: ESTROGENS, CONJUGATED\MEDROXYPROGESTERONE ACETATE
     Dosage: UNK; [0.625 MG/2.5 MG]

REACTIONS (6)
  - Haemorrhage [Unknown]
  - Dizziness [Unknown]
  - Malaise [Unknown]
  - Confusional state [Unknown]
  - Dyslexia [Unknown]
  - Headache [Unknown]
